FAERS Safety Report 18123005 (Version 1)
Quarter: 2020Q3

REPORT INFORMATION
  Report Type: Spontaneous
  Country: US (occurrence: US)
  Receive Date: 20200807
  Receipt Date: 20200807
  Transmission Date: 20201103
  Serious: Yes (Death, Hospitalization, Other)
  Sender: FDA-Public Use
  Company Number: US-LUPIN PHARMACEUTICALS INC.-2020-04289

PATIENT
  Age: 55 Year
  Sex: Male

DRUGS (6)
  1. MILRINONE [Suspect]
     Active Substance: MILRINONE
     Indication: CARDIAC OUTPUT DECREASED
     Dosage: UNK
     Route: 065
  2. SILDENAFIL. [Suspect]
     Active Substance: SILDENAFIL
     Indication: CARDIAC OUTPUT DECREASED
     Dosage: 20 MILLIGRAM, TID
     Route: 065
  3. MACITENTAN [Suspect]
     Active Substance: MACITENTAN
     Indication: CARDIAC OUTPUT DECREASED
     Dosage: 10 MILLIGRAM, QD
     Route: 065
  4. EPOPROSTENOL. [Suspect]
     Active Substance: EPOPROSTENOL
     Dosage: 8 NG/KG/MIN (REDUCED AND EVENTUALLY DISCONTINUED)
     Route: 051
  5. EPOPROSTENOL. [Suspect]
     Active Substance: EPOPROSTENOL
     Indication: CARDIAC OUTPUT DECREASED
     Dosage: 2 NG/KG/MIN (INITIAL, WITH GRADUAL UP?TITRATION)
     Route: 051
  6. EPOPROSTENOL. [Suspect]
     Active Substance: EPOPROSTENOL
     Dosage: UNK

REACTIONS (3)
  - Pulmonary veno-occlusive disease [Fatal]
  - Condition aggravated [Fatal]
  - Off label use [None]
